FAERS Safety Report 10872468 (Version 18)
Quarter: 2017Q2

REPORT INFORMATION
  Report Type: Report from Study
  Country: US (occurrence: US)
  Receive Date: 20150227
  Receipt Date: 20170404
  Transmission Date: 20170829
  Serious: Yes (Hospitalization, Other)
  Sender: FDA-Public Use
  Company Number: PHHY2014US072248

PATIENT
  Age: 59 Year
  Sex: Female
  Weight: 55.7 kg

DRUGS (22)
  1. GILENYA [Suspect]
     Active Substance: FINGOLIMOD HYDROCHLORIDE
     Indication: MULTIPLE SCLEROSIS
     Dosage: 0.5 MG, QD
     Route: 048
     Dates: start: 20140116, end: 20141223
  2. CIPRO 1A PHARMA [Concomitant]
     Active Substance: CIPROFLOXACIN\CIPROFLOXACIN HYDROCHLORIDE
     Indication: URINARY TRACT INFECTION
     Dosage: 500 MG, QD
     Route: 048
     Dates: start: 20140206, end: 20140213
  3. COPAXONE [Concomitant]
     Active Substance: GLATIRAMER ACETATE
     Indication: PRODUCT USED FOR UNKNOWN INDICATION
     Dosage: UNK
     Route: 065
     Dates: start: 20150405
  4. AMITRIPTYLINE [Concomitant]
     Active Substance: AMITRIPTYLINE
     Indication: PAIN
     Dosage: 10 MG, 1-3 TABLETS AT NIGHT
     Route: 048
     Dates: start: 20140506, end: 20141002
  5. VITAMINA D3 [Concomitant]
     Indication: VITAMIN D DEFICIENCY
     Dosage: 2000 IU, QD
     Route: 048
     Dates: start: 20091020
  6. CIPRO 1A PHARMA [Concomitant]
     Active Substance: CIPROFLOXACIN\CIPROFLOXACIN HYDROCHLORIDE
     Indication: SINUSITIS
     Dosage: 50 MG, BID
     Route: 065
     Dates: start: 20150305, end: 20150424
  7. SOLU-MEDROL [Concomitant]
     Active Substance: METHYLPREDNISOLONE SODIUM SUCCINATE
     Indication: PAIN IN EXTREMITY
     Dosage: UNK
     Route: 065
     Dates: start: 20150815
  8. AMITRIPTYLINE [Concomitant]
     Active Substance: AMITRIPTYLINE
     Indication: PAIN IN EXTREMITY
     Dosage: UNK
     Route: 065
     Dates: start: 20150604, end: 20150924
  9. CLARITIN [Concomitant]
     Active Substance: LORATADINE
     Indication: HYPERSENSITIVITY
     Dosage: 10 MG, QD
     Route: 048
     Dates: start: 20120905
  10. MORPHINE [Concomitant]
     Active Substance: MORPHINE
     Indication: PAIN
     Dosage: 180 MG, PRN
     Route: 048
     Dates: start: 20121212
  11. VITAMIIN C [Concomitant]
     Active Substance: ASCORBIC ACID
     Indication: PROPHYLAXIS
     Dosage: 1000 MG, QD
     Route: 048
     Dates: start: 2012, end: 20141002
  12. RAMELTEON [Concomitant]
     Active Substance: RAMELTEON
     Indication: INSOMNIA
     Dosage: UNK
     Route: 065
     Dates: start: 20150108, end: 20150604
  13. WELLBUTRIN [Concomitant]
     Active Substance: BUPROPION HYDROCHLORIDE
     Indication: PAIN
     Dosage: 300 MG, QD
     Route: 048
     Dates: start: 20091012, end: 20141231
  14. VALTREX [Concomitant]
     Active Substance: VALACYCLOVIR HYDROCHLORIDE
     Indication: HERPES ZOSTER
     Dosage: 1000 MG, QD
     Route: 048
     Dates: start: 20140206, end: 20140216
  15. OXYCODONE [Concomitant]
     Active Substance: OXYCODONE
     Indication: PAIN
     Dosage: 10 MG, PRN
     Route: 048
     Dates: start: 20100414
  16. KEPPRA [Concomitant]
     Active Substance: LEVETIRACETAM
     Indication: PROPHYLAXIS
     Dosage: 500 MG, QD
     Route: 048
     Dates: start: 20150108, end: 20150604
  17. SOLU-MEDROL [Concomitant]
     Active Substance: METHYLPREDNISOLONE SODIUM SUCCINATE
     Indication: MUSCLE SPASTICITY
     Dosage: 1000 MG, QD
     Route: 042
     Dates: start: 20141214, end: 20141216
  18. NAPROSYN [Concomitant]
     Active Substance: NAPROXEN
     Indication: PAIN
     Dosage: 500 MG, QD
     Route: 048
     Dates: start: 20130917, end: 20150108
  19. RESTORIL [Concomitant]
     Active Substance: TEMAZEPAM
     Indication: INSOMNIA
     Dosage: 15 MG, QD
     Route: 048
     Dates: start: 20120419, end: 20141230
  20. CYMBALTA [Concomitant]
     Active Substance: DULOXETINE HYDROCHLORIDE
     Indication: PAIN
     Dosage: 60 MG, QD
     Route: 048
     Dates: start: 20110117
  21. RITALIN [Concomitant]
     Active Substance: METHYLPHENIDATE HYDROCHLORIDE
     Indication: FATIGUE
     Dosage: 20 MG, QD
     Route: 048
     Dates: start: 20110913
  22. PROTONIX [Concomitant]
     Active Substance: PANTOPRAZOLE SODIUM
     Indication: PRODUCT USED FOR UNKNOWN INDICATION
     Dosage: 40 MG, UNK
     Route: 065
     Dates: start: 20150108, end: 20150604

REACTIONS (47)
  - Sinus pain [Recovered/Resolved]
  - Rhinitis [Unknown]
  - Ligament sprain [Recovered/Resolved]
  - Muscle spasticity [Recovered/Resolved]
  - Muscular weakness [Recovered/Resolved]
  - Cellulitis [Recovered/Resolved]
  - Cerebral haemorrhage [Recovered/Resolved]
  - Ocular vascular disorder [Recovering/Resolving]
  - Haematocrit decreased [Recovered/Resolved]
  - Blood alkaline phosphatase decreased [Unknown]
  - Optic neuritis [Unknown]
  - Fall [Recovered/Resolved]
  - Myelitis transverse [Unknown]
  - Fatigue [Recovered/Resolved]
  - Vision blurred [Not Recovered/Not Resolved]
  - Multiple sclerosis relapse [Recovered/Resolved]
  - Pain in extremity [Not Recovered/Not Resolved]
  - Sinusitis bacterial [Recovered/Resolved with Sequelae]
  - Device dislocation [Recovered/Resolved]
  - Pain in extremity [Recovered/Resolved]
  - Joint stiffness [Not Recovered/Not Resolved]
  - Pain in jaw [Not Recovered/Not Resolved]
  - Fatigue [Recovered/Resolved]
  - Staphylococcal bacteraemia [Recovered/Resolved]
  - Blood urine present [Recovered/Resolved]
  - Confusional state [Unknown]
  - Cognitive disorder [Recovered/Resolved]
  - Blood glucose increased [Recovered/Resolved]
  - Sinusitis [Not Recovered/Not Resolved]
  - Eyelid ptosis [Recovered/Resolved]
  - Cerebral atrophy [Recovering/Resolving]
  - Cerebral haematoma [Recovering/Resolving]
  - Venous thrombosis [Recovered/Resolved]
  - Muscle twitching [Recovered/Resolved]
  - Fall [Recovered/Resolved]
  - Fall [Recovered/Resolved]
  - Hyponatraemia [Recovered/Resolved]
  - Depression [Recovered/Resolved]
  - Protein total decreased [Recovered/Resolved]
  - Cavernous sinus thrombosis [Recovered/Resolved]
  - Headache [Recovered/Resolved]
  - Haemoglobin decreased [Recovered/Resolved]
  - Blood urea increased [Unknown]
  - Eye pain [Recovered/Resolved]
  - Chronic sinusitis [Unknown]
  - Diplopia [Recovering/Resolving]
  - Cranial nerve paralysis [Not Recovered/Not Resolved]

NARRATIVE: CASE EVENT DATE: 20140123
